FAERS Safety Report 20418138 (Version 2)
Quarter: 2022Q1

REPORT INFORMATION
  Report Type: Spontaneous
  Country: FR (occurrence: FR)
  Receive Date: 20220202
  Receipt Date: 20220222
  Transmission Date: 20220423
  Serious: Yes (Hospitalization, Disabling, Other)
  Sender: FDA-Public Use
  Company Number: FR-NOVARTISPH-NVSC2022FR019355

PATIENT
  Age: 62 Year
  Sex: Male
  Weight: 110 kg

DRUGS (29)
  1. PANTOPRAZOLE [Suspect]
     Active Substance: PANTOPRAZOLE
     Indication: Product used for unknown indication
     Dosage: UNK UNK, QD, 20: 0.0.1
     Route: 065
  2. MIANSERIN [Suspect]
     Active Substance: MIANSERIN
     Indication: Product used for unknown indication
     Dosage: UNK, 60: 0.0.0.1
     Route: 065
  3. ROPINIROLE [Suspect]
     Active Substance: ROPINIROLE
     Indication: Restless legs syndrome
     Dosage: 3.5 MG, QD, IF NECESSARY FOUR) IN THE EVENING
     Route: 065
  4. ROPINIROLE [Suspect]
     Active Substance: ROPINIROLE
     Dosage: 2 MG, QD
     Route: 065
     Dates: start: 20060526, end: 200811
  5. ROPINIROLE [Suspect]
     Active Substance: ROPINIROLE
     Dosage: 4 MG, QD
     Route: 065
     Dates: end: 200811
  6. DEPAKOTE [Suspect]
     Active Substance: DIVALPROEX SODIUM
     Indication: Bipolar I disorder
     Dosage: 1500 MG, QD
     Route: 065
     Dates: start: 200301, end: 201210
  7. DEPAKOTE [Suspect]
     Active Substance: DIVALPROEX SODIUM
     Dosage: 500 MG, BID, 500: 1.0.1
     Route: 065
  8. DEPAKOTE [Suspect]
     Active Substance: DIVALPROEX SODIUM
     Dosage: 250 MG, QD, 250: AT NOON
     Route: 065
  9. REQUIP [Suspect]
     Active Substance: ROPINIROLE HYDROCHLORIDE
     Indication: Restless legs syndrome
     Dosage: UNK
     Route: 065
     Dates: start: 2004
  10. REQUIP [Suspect]
     Active Substance: ROPINIROLE HYDROCHLORIDE
     Dosage: 0.5 MG
     Route: 065
     Dates: start: 20050502, end: 200606
  11. REQUIP [Suspect]
     Active Substance: ROPINIROLE HYDROCHLORIDE
     Dosage: 3 MG
     Route: 065
     Dates: start: 2006
  12. REQUIP [Suspect]
     Active Substance: ROPINIROLE HYDROCHLORIDE
     Dosage: 4 MG, QD IN EVENING
     Route: 065
  13. OXAZEPAM [Suspect]
     Active Substance: OXAZEPAM
     Indication: Product used for unknown indication
     Dosage: UNK
     Route: 065
     Dates: start: 2011, end: 201304
  14. LITHIUM [Suspect]
     Active Substance: LITHIUM
     Indication: Bipolar I disorder
     Dosage: UNK
     Route: 065
     Dates: start: 20030107, end: 2004
  15. PRAMIPEXOLE [Suspect]
     Active Substance: PRAMIPEXOLE
     Indication: Restless legs syndrome
     Dosage: UNK
     Route: 065
     Dates: end: 201203
  16. PRAMIPEXOLE [Suspect]
     Active Substance: PRAMIPEXOLE
     Dosage: 0.72 ML
     Route: 065
     Dates: start: 200904, end: 20120420
  17. PRAMIPEXOLE [Suspect]
     Active Substance: PRAMIPEXOLE
     Dosage: 0.18 MG, TID
     Route: 065
     Dates: start: 20081117, end: 200904
  18. PRAZEPAM [Suspect]
     Active Substance: PRAZEPAM
     Indication: Product used for unknown indication
     Dosage: UNK, QD,10: 1?2 TO 1/AT BEDTIME
     Route: 065
  19. PRAZEPAM [Suspect]
     Active Substance: PRAZEPAM
     Dosage: UNK UNK, TID, 10: 1.1.1
     Route: 065
  20. EFFEXOR [Suspect]
     Active Substance: VENLAFAXINE HYDROCHLORIDE
     Indication: Product used for unknown indication
     Dosage: UNKSTRENGTH: 75
     Route: 065
     Dates: start: 2011
  21. HERBALS\SAW PALMETTO [Suspect]
     Active Substance: HERBALS\SAW PALMETTO
     Indication: Product used for unknown indication
     Dosage: 2 DF, QD
     Route: 065
  22. VALPROMIDE [Suspect]
     Active Substance: VALPROMIDE
     Indication: Bipolar I disorder
     Dosage: UNK
     Route: 065
     Dates: start: 2001, end: 2003
  23. PIRIBEDIL [Suspect]
     Active Substance: PIRIBEDIL
     Indication: Restless legs syndrome
     Dosage: UNK
     Route: 065
     Dates: start: 2002
  24. PIRIBEDIL [Suspect]
     Active Substance: PIRIBEDIL
     Dosage: 50 MG, 50: 0.0 .1
     Route: 065
     Dates: start: 200407, end: 200412
  25. VOLTAREN [Concomitant]
     Active Substance: DICLOFENAC SODIUM
     Indication: Product used for unknown indication
     Dosage: UNK UNK, QD, 75 LP AT DINNER
     Route: 065
  26. BETAHISTINE [Concomitant]
     Active Substance: BETAHISTINE
     Indication: Product used for unknown indication
     Dosage: UNK
     Route: 065
  27. ETIFOXINE [Concomitant]
     Active Substance: ETIFOXINE
     Indication: Product used for unknown indication
     Dosage: UNK
     Route: 065
  28. NABUMETONE [Concomitant]
     Active Substance: NABUMETONE
     Indication: Product used for unknown indication
     Dosage: UNK
     Route: 065
  29. OLMIFON [Concomitant]
     Indication: Product used for unknown indication
     Dosage: UNK
     Route: 065

REACTIONS (48)
  - Bipolar disorder [Not Recovered/Not Resolved]
  - Confusional state [Unknown]
  - Anxiety [Unknown]
  - Depression [Unknown]
  - Apathy [Not Recovered/Not Resolved]
  - Cognitive disorder [Not Recovered/Not Resolved]
  - Polyneuropathy [Not Recovered/Not Resolved]
  - Emotional disorder [Not Recovered/Not Resolved]
  - Procrastination [Not Recovered/Not Resolved]
  - General physical health deterioration [Not Recovered/Not Resolved]
  - Dementia Alzheimer^s type [Unknown]
  - Bipolar I disorder [Unknown]
  - Schizoaffective disorder [Unknown]
  - Dementia [Unknown]
  - Mental impairment [Unknown]
  - Carpal tunnel syndrome [Recovered/Resolved]
  - Loss of personal independence in daily activities [Unknown]
  - Fatigue [Unknown]
  - Overweight [Unknown]
  - Pain [Unknown]
  - Adjustment disorder [Unknown]
  - Hyperhidrosis [Unknown]
  - Logorrhoea [Unknown]
  - Gambling [Recovered/Resolved]
  - Sleep apnoea syndrome [Unknown]
  - Libido increased [Unknown]
  - Tremor [Unknown]
  - Disorientation [Unknown]
  - Abnormal behaviour [Unknown]
  - Crying [Unknown]
  - Restless legs syndrome [Recovered/Resolved]
  - Agitation [Unknown]
  - Hypertension [Unknown]
  - Poor quality sleep [Unknown]
  - Hepatic steatosis [Unknown]
  - Condition aggravated [Recovered/Resolved]
  - Psychiatric symptom [Unknown]
  - Memory impairment [Unknown]
  - Mental disorder [Unknown]
  - Insomnia [Unknown]
  - Speech disorder [Unknown]
  - Abdominal distension [Unknown]
  - Mental disorder [Unknown]
  - Nausea [Unknown]
  - Drug ineffective [Unknown]
  - Incorrect dose administered [Unknown]
  - Overdose [Unknown]
  - Therapeutic product effect incomplete [Unknown]

NARRATIVE: CASE EVENT DATE: 20120701
